FAERS Safety Report 18137014 (Version 1)
Quarter: 2020Q3

REPORT INFORMATION
  Report Type: Report from Study
  Country: US (occurrence: US)
  Receive Date: 20200811
  Receipt Date: 20200811
  Transmission Date: 20201103
  Serious: Yes (Hospitalization)
  Sender: FDA-Public Use
  Company Number: US-ACTELION-A-NJ2020-204813

PATIENT
  Sex: Male

DRUGS (4)
  1. UPTRAVI [Suspect]
     Active Substance: SELEXIPAG
     Indication: PULMONARY ARTERIAL HYPERTENSION
     Dosage: 600 MCG, BID
     Route: 048
     Dates: start: 20200414
  2. UPTRAVI [Suspect]
     Active Substance: SELEXIPAG
     Dosage: 800 MCG, BID
     Route: 048
  3. UPTRAVI [Suspect]
     Active Substance: SELEXIPAG
     Dosage: 400 MCG, BID
     Route: 048
     Dates: start: 20200414
  4. AMLODIPINE [Concomitant]
     Active Substance: AMLODIPINE BESYLATE

REACTIONS (14)
  - Dyspnoea [Unknown]
  - Diarrhoea [Unknown]
  - Hospitalisation [Unknown]
  - Neoplasm skin [Unknown]
  - Flushing [Unknown]
  - Blood pressure abnormal [Unknown]
  - Cough [Unknown]
  - Oral pain [Unknown]
  - Dyspepsia [Unknown]
  - Hypertension [Unknown]
  - Pain in jaw [Unknown]
  - Renal function test abnormal [Unknown]
  - Salivary hypersecretion [Not Recovered/Not Resolved]
  - Peripheral swelling [Unknown]
